FAERS Safety Report 16269274 (Version 1)
Quarter: 2019Q2

REPORT INFORMATION
  Report Type: Spontaneous
  Country: US (occurrence: US)
  Receive Date: 20190502
  Receipt Date: 20190502
  Transmission Date: 20190711
  Serious: Yes (Other)
  Sender: FDA-Public Use
  Company Number: None

PATIENT
  Age: 14 Year
  Sex: Male
  Weight: 65.25 kg

DRUGS (2)
  1. KEPPRA 1000 MG [Concomitant]
  2. LEVETIRACETAM. [Suspect]
     Active Substance: LEVETIRACETAM
     Indication: SEIZURE
     Dosage: ?          QUANTITY:60 TABLET(S);?
     Route: 048
     Dates: start: 20190422, end: 20190424

REACTIONS (3)
  - Product substitution issue [None]
  - Drug ineffective [None]
  - Seizure [None]

NARRATIVE: CASE EVENT DATE: 20190422
